FAERS Safety Report 24784028 (Version 1)
Quarter: 2024Q4

REPORT INFORMATION
  Report Type: Spontaneous
  Country: TH (occurrence: TH)
  Receive Date: 20241227
  Receipt Date: 20241227
  Transmission Date: 20250115
  Serious: Yes (Hospitalization, Other)
  Sender: VISTAPHARM
  Company Number: TH-VISTAPHARM-2024-TH-000021

PATIENT
  Age: 84 Year
  Sex: Male

DRUGS (1)
  1. METFORMIN HYDROCHLORIDE [Suspect]
     Active Substance: METFORMIN HYDROCHLORIDE
     Indication: Diabetes mellitus
     Dosage: 1700 MG DAILY

REACTIONS (3)
  - Subdural haematoma [Recovered/Resolved]
  - Gait disturbance [Recovered/Resolved]
  - Vitamin B12 deficiency [Recovered/Resolved]
